FAERS Safety Report 12565732 (Version 1)
Quarter: 2016Q3

REPORT INFORMATION
  Report Type: Spontaneous
  Country: US (occurrence: US)
  Receive Date: 20160718
  Receipt Date: 20160718
  Transmission Date: 20161109
  Serious: No
  Sender: FDA-Public Use
  Company Number: US-BAUSCH-BL-2015-018052

PATIENT
  Age: 89 Year
  Sex: Female

DRUGS (2)
  1. LACRISERT [Suspect]
     Active Substance: HYDROXYPROPYL CELLULOSE
     Indication: SJOGREN^S SYNDROME
     Route: 047
  2. BIO TEARS [Concomitant]
     Active Substance: POLYVINYL ALCOHOL
     Indication: DRY EYE
     Route: 047

REACTIONS (2)
  - Off label use [Unknown]
  - Ocular discomfort [Not Recovered/Not Resolved]
